FAERS Safety Report 7822847-1 (Version None)
Quarter: 2011Q4

REPORT INFORMATION
  Report Type: 
  Country: None (occurrence: None)
  Receive Date: 20111018
  Receipt Date: 20110315
  Transmission Date: 20120403
  Serious: No
  Sender: FDA-Public Use
  Company Number: US-ASTRAZENECA-2011SE01283

PATIENT
  Age: 48 Year
  Sex: Female

DRUGS (1)
  1. SYMBICORT [Suspect]
     Dosage: 160/4.5 MCG FREQUENCY UNKNOWN
     Route: 055

REACTIONS (4)
  - INFLUENZA [None]
  - UPPER RESPIRATORY TRACT INFECTION [None]
  - DEPRESSED MOOD [None]
  - PHARYNGITIS [None]
